FAERS Safety Report 20745983 (Version 1)
Quarter: 2022Q2

REPORT INFORMATION
  Report Type: Report from Study
  Country: US (occurrence: US)
  Receive Date: 20220425
  Receipt Date: 20220425
  Transmission Date: 20220721
  Serious: No
  Sender: FDA-Public Use
  Company Number: US-MIRM-000261

PATIENT
  Age: 7 Year
  Sex: Male
  Weight: 25.401 kg

DRUGS (2)
  1. LIVMARLI [Suspect]
     Active Substance: MARALIXIBAT CHLORIDE
     Indication: Pruritus
     Route: 048
     Dates: start: 20220102
  2. 1328139 (GLOBALC3Sep19): Rifampin [Concomitant]
     Indication: Product used for unknown indication
     Route: 048

REACTIONS (2)
  - Abdominal distension [Unknown]
  - Abdominal pain upper [Unknown]

NARRATIVE: CASE EVENT DATE: 20220102
